FAERS Safety Report 9425118 (Version 4)
Quarter: 2013Q4

REPORT INFORMATION
  Report Type: Report from Study
  Country: JP (occurrence: JP)
  Receive Date: 20130729
  Receipt Date: 20131125
  Transmission Date: 20140711
  Serious: Yes (Death)
  Sender: FDA-Public Use
  Company Number: JP-GLAXOSMITHKLINE-B0911151A

PATIENT
  Age: 35 Year
  Sex: Female
  Weight: 39 kg

DRUGS (4)
  1. VOTRIENT 200MG [Suspect]
     Indication: SPINDLE CELL SARCOMA
     Route: 048
  2. VOTRIENT 200MG [Suspect]
     Indication: SPINDLE CELL SARCOMA
     Dosage: 400MG PER DAY
     Route: 048
     Dates: start: 20130607, end: 20130720
  3. NEXIUM [Concomitant]
     Route: 048
  4. CRAVIT [Concomitant]
     Route: 065

REACTIONS (1)
  - Sepsis [Fatal]
